FAERS Safety Report 14207402 (Version 1)
Quarter: 2017Q4

REPORT INFORMATION
  Report Type: Other
  Country: CN (occurrence: CN)
  Receive Date: 20171121
  Receipt Date: 20171121
  Transmission Date: 20180321
  Serious: Yes (Other)
  Sender: FDA-Public Use
  Company Number: CN-APOTEX-2017AP021515

PATIENT
  Age: 25 Year
  Sex: Female

DRUGS (2)
  1. SEROXAT [Suspect]
     Active Substance: PAROXETINE HYDROCHLORIDE
     Indication: ANXIETY DISORDER
     Dosage: 20 MG, QD
     Route: 048
     Dates: start: 20170512, end: 20170901
  2. ESTAZOLAM. [Suspect]
     Active Substance: ESTAZOLAM
     Indication: ANXIETY DISORDER
     Dosage: 0.75 MG, QD
     Route: 048
     Dates: start: 20170512, end: 20170908

REACTIONS (2)
  - Metrorrhagia [Recovered/Resolved]
  - Menorrhagia [Unknown]

NARRATIVE: CASE EVENT DATE: 20170815
